FAERS Safety Report 9185201 (Version 3)
Quarter: 2013Q3

REPORT INFORMATION
  Report Type: Spontaneous
  Country: GR (occurrence: GR)
  Receive Date: 20130325
  Receipt Date: 20130923
  Transmission Date: 20140515
  Serious: Yes (Death, Life-Threatening, Other)
  Sender: FDA-Public Use
  Company Number: GR-BIOGENIDEC-2013BI008402

PATIENT
  Age: 43 Year
  Sex: Male

DRUGS (1)
  1. TYSABRI [Suspect]
     Indication: MULTIPLE SCLEROSIS
     Route: 042
     Dates: start: 200809, end: 20130116

REACTIONS (4)
  - Infection [Fatal]
  - Anaemia [Fatal]
  - Disseminated intravascular coagulation [Fatal]
  - Progressive multifocal leukoencephalopathy [Unknown]
